FAERS Safety Report 13541078 (Version 1)
Quarter: 2017Q2

REPORT INFORMATION
  Report Type: Spontaneous
  Country: US (occurrence: US)
  Receive Date: 20170512
  Receipt Date: 20170512
  Transmission Date: 20170830
  Serious: No
  Sender: FDA-Public Use
  Company Number: US-BAYER-2017-089378

PATIENT
  Sex: Female

DRUGS (3)
  1. CLARITIN-D 12 HOUR [Suspect]
     Active Substance: LORATADINE\PSEUDOEPHEDRINE SULFATE
     Indication: MULTIPLE ALLERGIES
     Dosage: 1 DF, QD
     Dates: start: 20170330
  2. CLARITIN-D 12 HOUR [Suspect]
     Active Substance: LORATADINE\PSEUDOEPHEDRINE SULFATE
     Indication: MULTIPLE ALLERGIES
     Dosage: 1 DF, QD
     Dates: start: 20170329
  3. CLARITIN-D 12 HOUR [Suspect]
     Active Substance: LORATADINE\PSEUDOEPHEDRINE SULFATE
     Indication: MULTIPLE ALLERGIES
     Dosage: 1 DF, QD
     Dates: start: 20170331

REACTIONS (5)
  - Discomfort [Unknown]
  - Aphonia [Recovering/Resolving]
  - Throat irritation [Not Recovered/Not Resolved]
  - Cough [Unknown]
  - Viral upper respiratory tract infection [None]

NARRATIVE: CASE EVENT DATE: 20170331
